FAERS Safety Report 11014694 (Version 2)
Quarter: 2015Q2

REPORT INFORMATION
  Report Type: Spontaneous
  Country: US (occurrence: US)
  Receive Date: 20150412
  Receipt Date: 20150525
  Transmission Date: 20150821
  Serious: No
  Sender: FDA-Public Use
  Company Number: US-JNJFOC-20140813335

PATIENT

DRUGS (2)
  1. TRAMADOL HYDROCHLORIDE. [Suspect]
     Active Substance: TRAMADOL HYDROCHLORIDE
     Indication: EJACULATION DELAYED
     Route: 065
  2. TRAMADOL HYDROCHLORIDE. [Suspect]
     Active Substance: TRAMADOL HYDROCHLORIDE
     Indication: PREMATURE EJACULATION
     Route: 065

REACTIONS (3)
  - Withdrawal syndrome [Unknown]
  - Off label use [Unknown]
  - Therapeutic response unexpected [Unknown]
